FAERS Safety Report 11051073 (Version 4)
Quarter: 2015Q2

REPORT INFORMATION
  Report Type: Spontaneous
  Country: IT (occurrence: IT)
  Receive Date: 20150421
  Receipt Date: 20150512
  Transmission Date: 20150821
  Serious: Yes (Hospitalization)
  Sender: FDA-Public Use
  Company Number: IT-TEVA-555623ACC

PATIENT
  Age: 61 Year
  Sex: Male

DRUGS (5)
  1. ENALAPRIL RATIOPHARM - 20 MG COMPRESSE - RATIOPHARM GMBH [Suspect]
     Active Substance: ENALAPRIL
     Indication: HYPERTENSION
     Dosage: 1 DOSAGE FORMS DAILY; 1 DF DAILY
     Route: 048
  2. SELES BETA - 100 MG COMPRESSE - UCB PHARMA S.P.A. [Suspect]
     Active Substance: ATENOLOL
     Indication: HYPERTENSION
     Dosage: 1 DOSAGE FORMS DAILY; 1 DF DAILY
     Route: 048
  3. CARDIRENE - 160 MG POLVERE PER SOLUZIONE ORALE - SANOFI S.P.A [Suspect]
     Active Substance: ASPIRIN DL-LYSINE
     Indication: PRODUCT USED FOR UNKNOWN INDICATION
     Dosage: 1 DOSAGE FORMS DAILY; 1 DF DAILY
     Route: 048
  4. CRESTOR [Suspect]
     Active Substance: ROSUVASTATIN CALCIUM
     Indication: DYSLIPIDAEMIA
     Dosage: 1 DOSAGE FORMS DAILY; 1 DF DAILY
     Route: 048
  5. MONOCINQUE - 20 MG COMPRESSE - ISTITUTO LUSO FARMACO D ITALIA S.P.A [Suspect]
     Active Substance: ISOSORBIDE MONONITRATE
     Indication: PRODUCT USED FOR UNKNOWN INDICATION
     Dosage: 2 DOSAGE FORMS DAILY; 2 DF DAILY
     Route: 048

REACTIONS (7)
  - Cardiac disorder [Unknown]
  - Oedema peripheral [Recovered/Resolved]
  - Treatment noncompliance [Recovered/Resolved]
  - Tachycardia [Recovered/Resolved]
  - Breath sounds abnormal [Recovered/Resolved]
  - Influenza [Unknown]
  - Dyspnoea [Recovered/Resolved]

NARRATIVE: CASE EVENT DATE: 20140429
